FAERS Safety Report 18352369 (Version 1)
Quarter: 2020Q4

REPORT INFORMATION
  Report Type: Report from Study
  Country: None (occurrence: US)
  Receive Date: 20201006
  Receipt Date: 20201006
  Transmission Date: 20210114
  Serious: Yes (Other)
  Sender: FDA-Public Use
  Company Number: US-ABBVIE-20K-163-3588539-00

PATIENT
  Age: 53 Year
  Sex: Female

DRUGS (4)
  1. TYLENOL [Concomitant]
     Active Substance: ACETAMINOPHEN
     Indication: PRODUCT USED FOR UNKNOWN INDICATION
  2. TRINESSA [Concomitant]
     Active Substance: ETHINYL ESTRADIOL\NORGESTIMATE
     Indication: CONTRACEPTION
  3. ORIAHNN [Suspect]
     Active Substance: ELAGOLIX SODIUM\ESTRADIOL\NORETHINDRONE
     Indication: UTERINE LEIOMYOMA
     Dosage: MORNING
     Route: 048
     Dates: start: 202009, end: 202009
  4. ORIAHNN [Suspect]
     Active Substance: ELAGOLIX SODIUM\ESTRADIOL\NORETHINDRONE
     Indication: UTERINE LEIOMYOMA
     Dosage: NIGHT
     Route: 048
     Dates: start: 202009, end: 202009

REACTIONS (2)
  - Haemoglobin decreased [Unknown]
  - Hysterectomy [Unknown]

NARRATIVE: CASE EVENT DATE: 202009
